FAERS Safety Report 9203082 (Version 1)
Quarter: 2013Q1

REPORT INFORMATION
  Report Type: Spontaneous
  Country: US (occurrence: None)
  Receive Date: 20130329
  Receipt Date: 20130329
  Transmission Date: 20140127
  Serious: Yes (Death)
  Sender: FDA-Public Use
  Company Number: AUR-APL-2013-02522

PATIENT
  Sex: Male

DRUGS (1)
  1. CYCLOBENZAPRINE (CYCLOBENZAPRINE) [Suspect]
     Indication: PRODUCT USED FOR UNKNOWN INDICATION

REACTIONS (2)
  - Intentional drug misuse [None]
  - Toxicity to various agents [None]
